FAERS Safety Report 7729607-0 (Version None)
Quarter: 2011Q3

REPORT INFORMATION
  Report Type: 
  Country: None (occurrence: None)
  Receive Date: 20110906
  Receipt Date: 20110829
  Transmission Date: 20111222
  Serious: Yes (Hospitalization)
  Sender: FDA-Public Use
  Company Number: US-BAYER-200938772NA

PATIENT
  Age: 39 Year
  Sex: Female
  Weight: 52.273 kg

DRUGS (4)
  1. ZOLOFT [Concomitant]
  2. VITAMIN TAB [Concomitant]
  3. YASMIN [Suspect]
     Dosage: UNK
     Dates: start: 20030101, end: 20040101
  4. XANAX [Concomitant]

REACTIONS (7)
  - ISCHAEMIC CEREBRAL INFARCTION [None]
  - HEADACHE [None]
  - NEUROLOGICAL SYMPTOM [None]
  - DYSARTHRIA [None]
  - TRANSIENT ISCHAEMIC ATTACK [None]
  - MOBILITY DECREASED [None]
  - MIGRAINE [None]
